FAERS Safety Report 11988390 (Version 5)
Quarter: 2016Q1

REPORT INFORMATION
  Report Type: Spontaneous
  Country: US (occurrence: US)
  Receive Date: 20160202
  Receipt Date: 20160217
  Transmission Date: 20160526
  Serious: Yes (Other)
  Sender: FDA-Public Use
  Company Number: US-PFIZER INC-2016052069

PATIENT
  Age: 80 Year
  Sex: Female
  Weight: 53 kg

DRUGS (3)
  1. NEURONTIN [Suspect]
     Active Substance: GABAPENTIN
     Dosage: 400 MG, DAILY
     Dates: end: 20160207
  2. LIPITOR [Concomitant]
     Active Substance: ATORVASTATIN CALCIUM
     Indication: BLOOD CHOLESTEROL ABNORMAL
     Dosage: 20 MG, 1X/DAY
  3. NEURONTIN [Suspect]
     Active Substance: GABAPENTIN
     Indication: NEURALGIA
     Dosage: 100 MG, 4X/DAY
     Dates: start: 201601

REACTIONS (6)
  - Weight increased [Unknown]
  - Condition aggravated [Unknown]
  - Presyncope [Recovered/Resolved]
  - Alopecia [Unknown]
  - Gastrooesophageal reflux disease [Unknown]
  - Hypotension [Recovered/Resolved]

NARRATIVE: CASE EVENT DATE: 20160128
